FAERS Safety Report 10649894 (Version 1)
Quarter: 2014Q4

REPORT INFORMATION
  Report Type: Spontaneous
  Country: US (occurrence: None)
  Receive Date: 20141205
  Receipt Date: 20141205
  Transmission Date: 20150529
  Serious: No
  Sender: FDA-Public Use
  Company Number: USA-2014094683

PATIENT
  Age: 79 Year
  Sex: Male

DRUGS (6)
  1. NEXIUM(ESOMEPRAZOLE MAGNESIUM) (UNKNOWN) [Concomitant]
  2. POMALYST [Suspect]
     Active Substance: POMALIDOMIDE
     Indication: PLASMA CELL MYELOMA
     Dosage: 21 IN 28 D
     Route: 048
     Dates: start: 20140626, end: 20140919
  3. SERTRALINE(SERTRALINE) (UNKNOWN) [Concomitant]
  4. ASPIRIN(ACETYLSALICYLIC ACID) (UNKNOWN) [Concomitant]
  5. CLONAZEPAM(CLONAZEPAM) (UNKNOWN) [Concomitant]
  6. COLESTIPOL(COLESTIPOL) (UNKNOWN) [Concomitant]

REACTIONS (1)
  - Adverse drug reaction [None]

NARRATIVE: CASE EVENT DATE: 2014
